FAERS Safety Report 18676569 (Version 1)
Quarter: 2020Q4

REPORT INFORMATION
  Report Type: Spontaneous
  Country: US (occurrence: US)
  Receive Date: 20201229
  Receipt Date: 20201229
  Transmission Date: 20210114
  Serious: Yes (Hospitalization)
  Sender: FDA-Public Use
  Company Number: US-PFIZER INC-2020510837

PATIENT
  Age: 52 Year
  Sex: Female

DRUGS (1)
  1. IBRANCE [Suspect]
     Active Substance: PALBOCICLIB
     Dosage: 100 MG
     Dates: start: 20200101

REACTIONS (7)
  - Neoplasm progression [Unknown]
  - Cough [Unknown]
  - Pneumonia [Unknown]
  - Neck pain [Unknown]
  - Dyspnoea [Unknown]
  - Eye disorder [Unknown]
  - Pulmonary oedema [Unknown]
